FAERS Safety Report 4779388-8 (Version None)
Quarter: 2005Q3

REPORT INFORMATION
  Report Type: 
  Country: None (occurrence: None)
  Receive Date: 20050927
  Receipt Date: 20050805
  Transmission Date: 20060218
  Serious: Yes (Hospitalization)
  Sender: FDA-Public Use
  Company Number: US-BOEHRINGER INGELHEIM PHARMACEUTICALS, INC.-2005-BP-13460BP

PATIENT
  Sex: Male
  Weight: 68 kg

DRUGS (3)
  1. TIPRANAVIR / RITONAVIR CAPSULES [Suspect]
     Indication: HIV INFECTION
     Dosage: TPV/RTV 1000/400MG
     Route: 048
     Dates: start: 20040621, end: 20050713
  2. TRUVADA [Concomitant]
     Indication: HIV INFECTION
     Dosage: 200/300 MG
     Route: 048
     Dates: start: 20040621, end: 20050713
  3. VIDEX [Concomitant]
     Indication: HIV INFECTION
     Route: 048
     Dates: start: 20040621, end: 20050713

REACTIONS (3)
  - DRUG INTOLERANCE [None]
  - GUILLAIN-BARRE SYNDROME [None]
  - THERAPY NON-RESPONDER [None]
